FAERS Safety Report 5627635-2 (Version None)
Quarter: 2008Q1

REPORT INFORMATION
  Report Type: 
  Country: None (occurrence: None)
  Receive Date: 20080214
  Receipt Date: 20080214
  Transmission Date: 20080703
  Serious: Yes (Other)
  Sender: FDA-Public Use
  Company Number: None

PATIENT
  Age: 46 Year
  Sex: Female
  Weight: 81.6475 kg

DRUGS (1)
  1. CYMBALTA [Suspect]
     Indication: DEPRESSION
     Dosage: 60 MG  ONCE A DAY  PO
     Route: 048
     Dates: start: 20070101, end: 20080201

REACTIONS (5)
  - ACTIVITIES OF DAILY LIVING IMPAIRED [None]
  - DIZZINESS [None]
  - DRUG WITHDRAWAL SYNDROME [None]
  - MALAISE [None]
  - PARAESTHESIA [None]
